FAERS Safety Report 16369582 (Version 1)
Quarter: 2019Q2

REPORT INFORMATION
  Report Type: Report from Study
  Country: US (occurrence: US)
  Receive Date: 20190530
  Receipt Date: 20190530
  Transmission Date: 20190711
  Serious: Yes (Hospitalization)
  Sender: FDA-Public Use
  Company Number: US-BEH-2019102920

PATIENT
  Age: 46 Year
  Sex: Female
  Weight: 117.91 kg

DRUGS (2)
  1. HIZENTRA [Suspect]
     Active Substance: HUMAN IMMUNOGLOBULIN G
     Indication: IMMUNODEFICIENCY COMMON VARIABLE
  2. HIZENTRA [Suspect]
     Active Substance: HUMAN IMMUNOGLOBULIN G
     Indication: PRIMARY IMMUNODEFICIENCY SYNDROME
     Dosage: 150 ML, QW
     Route: 058
     Dates: start: 2011, end: 2013

REACTIONS (4)
  - Injection site erythema [Recovered/Resolved]
  - Generalised oedema [Recovered/Resolved]
  - Headache [Recovered/Resolved]
  - Injection site swelling [Recovered/Resolved]
